FAERS Safety Report 7360851-0 (Version None)
Quarter: 2011Q1

REPORT INFORMATION
  Report Type: 
  Country: None (occurrence: None)
  Receive Date: 20110318
  Receipt Date: 20110304
  Transmission Date: 20110831
  Serious: Yes (Other)
  Sender: FDA-Public Use
  Company Number: US-SANOFI-AVENTIS-2011SA015808

PATIENT
  Age: 87 Year
  Sex: Female

DRUGS (7)
  1. MULTAQ [Suspect]
     Indication: ATRIAL FIBRILLATION
     Route: 048
     Dates: start: 20091107, end: 20110304
  2. PRAVASTATIN [Concomitant]
  3. SYNTHROID [Concomitant]
  4. PRILOSEC [Concomitant]
  5. CARVEDILOL [Concomitant]
  6. NORTRIPTYLINE [Concomitant]
  7. WARFARIN SODIUM [Concomitant]

REACTIONS (3)
  - ATRIAL FIBRILLATION [None]
  - MALAISE [None]
  - ELECTROCARDIOGRAM PR PROLONGATION [None]
